FAERS Safety Report 4312848-2 (Version None)
Quarter: 2004Q1

REPORT INFORMATION
  Report Type: 
  Country: None (occurrence: None)
  Receive Date: 20040304
  Receipt Date: 20040223
  Transmission Date: 20041129
  Serious: Yes (Hospitalization)
  Sender: FDA-Public Use
  Company Number: 203626

PATIENT
  Age: 67 Year
  Sex: Male
  Weight: 63 kg

DRUGS (6)
  1. RITUXIMAB (RITUXIMAB) CONC [Suspect]
     Indication: CHRONIC LYMPHOCYTIC LEUKAEMIA
     Dosage: SEE IMAGE
     Dates: start: 20031029
  2. RITUXIMAB (RITUXIMAB) CONC [Suspect]
     Indication: CHRONIC LYMPHOCYTIC LEUKAEMIA
     Dosage: SEE IMAGE
     Dates: start: 20031126
  3. FLUDARABINE PHOSPHATE [Suspect]
     Indication: CHRONIC LYMPHOCYTIC LEUKAEMIA
     Dosage: 25 MG/M2 , QDX3D/28DC, IV
     Route: 042
     Dates: start: 20031030
  4. CYCLOPHOSPHAMIDE [Suspect]
     Indication: CHRONIC LYMPHOCYTIC LEUKAEMIA
     Dosage: 250 MG/M2, QDX3D//28DC, IV
     Route: 042
     Dates: start: 20031030
  5. ALLOPURINOL [Concomitant]
  6. BACTRIM DS [Concomitant]

REACTIONS (1)
  - FEBRILE NEUTROPENIA [None]
